FAERS Safety Report 6869259-5 (Version None)
Quarter: 2010Q3

REPORT INFORMATION
  Report Type: 
  Country: None (occurrence: None)
  Receive Date: 20100722
  Receipt Date: 20100722
  Transmission Date: 20110219
  Serious: Yes (Life-Threatening)
  Sender: FDA-Public Use
  Company Number: None

PATIENT
  Sex: Female

DRUGS (1)
  1. LOTREL [Suspect]
     Indication: HYPERTENSION
     Dosage: 10/40 DAILY PO
     Route: 048
     Dates: start: 20100322, end: 20100520

REACTIONS (2)
  - CHOLESTASIS [None]
  - LIVER DISORDER [None]
